FAERS Safety Report 9059768 (Version 1)
Quarter: 2013Q1

REPORT INFORMATION
  Report Type: Spontaneous
  Country: US (occurrence: None)
  Receive Date: 20130206
  Receipt Date: 20130206
  Transmission Date: 20140127
  Serious: No
  Sender: FDA-Public Use
  Company Number: None

PATIENT
  Age: 59 Year
  Sex: Female
  Weight: 100.25 kg

DRUGS (1)
  1. DIFLUPREDNATE [Suspect]
     Indication: POSTOPERATIVE CARE

REACTIONS (3)
  - Headache [None]
  - Chest pain [None]
  - Sinus congestion [None]
